FAERS Safety Report 19218334 (Version 4)
Quarter: 2022Q2

REPORT INFORMATION
  Report Type: Report from Study
  Country: US (occurrence: None)
  Receive Date: 20210505
  Receipt Date: 20220603
  Transmission Date: 20220720
  Serious: Yes (Other)
  Sender: FDA-Public Use
  Company Number: US-MERCK HEALTHCARE KGAA-9174800

PATIENT
  Age: 34 Year
  Sex: Female
  Weight: 125 kg

DRUGS (9)
  1. MAVENCLAD [Suspect]
     Active Substance: CLADRIBINE
     Indication: Multiple sclerosis
     Dosage: YEAR ONE MONTH ONE THERAPY.
     Route: 048
     Dates: start: 20200404, end: 20200408
  2. MAVENCLAD [Suspect]
     Active Substance: CLADRIBINE
     Dosage: YEAR ONE MONTH TWO THERAPY.
     Route: 048
     Dates: start: 20200501, end: 20200505
  3. MAVENCLAD [Suspect]
     Active Substance: CLADRIBINE
     Dosage: YEAR TWO MONTH ONE THERAPY.
     Route: 048
  4. MAVENCLAD [Suspect]
     Active Substance: CLADRIBINE
     Dosage: YEAR TWO MONTH TWO THERAPY.
     Route: 048
     Dates: start: 20220525
  5. SYNTHROID [Concomitant]
     Active Substance: LEVOTHYROXINE SODIUM
     Indication: Product used for unknown indication
  6. SINGULAIR [Concomitant]
     Active Substance: MONTELUKAST SODIUM
     Indication: Product used for unknown indication
  7. AMLODIPINE [Concomitant]
     Active Substance: AMLODIPINE BESYLATE
     Indication: Product used for unknown indication
  8. ZOLOFT [Concomitant]
     Active Substance: SERTRALINE HYDROCHLORIDE
     Indication: Product used for unknown indication
  9. VALTREX [Concomitant]
     Active Substance: VALACYCLOVIR HYDROCHLORIDE
     Indication: Product used for unknown indication

REACTIONS (7)
  - Amniotic cavity infection [Unknown]
  - Pre-eclampsia [Unknown]
  - Thyroid disorder [Unknown]
  - High risk pregnancy [Unknown]
  - Maternal exposure before pregnancy [Recovered/Resolved]
  - Live birth [Recovered/Resolved]
  - Treatment noncompliance [Unknown]

NARRATIVE: CASE EVENT DATE: 20200601
